FAERS Safety Report 15112316 (Version 1)
Quarter: 2018Q3

REPORT INFORMATION
  Report Type: Spontaneous
  Country: US (occurrence: US)
  Receive Date: 20180705
  Receipt Date: 20180705
  Transmission Date: 20181010
  Serious: No
  Sender: FDA-Public Use
  Company Number: US-AMAG PHARMACEUTICALS, INC.-AMAG201802728

PATIENT
  Age: 77 Year
  Sex: Male
  Weight: 88.9 kg

DRUGS (4)
  1. FERUMOXYTOL [Suspect]
     Active Substance: FERUMOXYTOL NON-STOICHIOMETRIC MAGNETITE
     Indication: IRON DEFICIENCY ANAEMIA
     Dosage: 510 MG, SINGLE
     Route: 041
     Dates: start: 20180523, end: 20180523
  2. FERUMOXYTOL [Suspect]
     Active Substance: FERUMOXYTOL NON-STOICHIOMETRIC MAGNETITE
     Dosage: 510 MG, SINGLE
     Route: 041
     Dates: start: 20180530, end: 20180530
  3. METOPROLOL. [Concomitant]
     Active Substance: METOPROLOL
     Indication: BLOOD PRESSURE ABNORMAL
     Dosage: UNK
     Route: 065
  4. HEMOGLOBIN [Concomitant]
     Indication: IRON DEFICIENCY ANAEMIA
     Dosage: UNK
     Route: 042

REACTIONS (5)
  - Heart rate increased [Unknown]
  - Gastrointestinal disorder [Unknown]
  - Rash pruritic [Not Recovered/Not Resolved]
  - Headache [Recovered/Resolved]
  - Nausea [Recovered/Resolved]

NARRATIVE: CASE EVENT DATE: 2018
